FAERS Safety Report 25706852 (Version 1)
Quarter: 2025Q3

REPORT INFORMATION
  Report Type: Spontaneous
  Country: US (occurrence: US)
  Receive Date: 20250820
  Receipt Date: 20250820
  Transmission Date: 20251020
  Serious: No
  Sender: SANOFI AVENTIS
  Company Number: US-SA-2025SA247793

PATIENT
  Sex: Female
  Weight: 58.957 kg

DRUGS (18)
  1. DUPIXENT [Suspect]
     Active Substance: DUPILUMAB
     Indication: Neurodermatitis
     Dosage: 300 MG, QOW
     Route: 058
  2. DESONIDE [Concomitant]
     Active Substance: DESONIDE
  3. DOXAZOSIN MESYLATE [Concomitant]
     Active Substance: DOXAZOSIN MESYLATE
  4. MUPIROCIN [Concomitant]
     Active Substance: MUPIROCIN
  5. CLINDAGEL [Concomitant]
     Active Substance: CLINDAMYCIN PHOSPHATE
  6. CLOBETASOL [Concomitant]
     Active Substance: CLOBETASOL
  7. TRETINOIN [Concomitant]
     Active Substance: TRETINOIN
  8. ESTRADIOL [Concomitant]
     Active Substance: ESTRADIOL
  9. TRAZODONE HCL [Concomitant]
     Active Substance: TRAZODONE HYDROCHLORIDE
  10. DONEPEZIL HYDROCHLORIDE [Concomitant]
     Active Substance: DONEPEZIL HYDROCHLORIDE
  11. DULOXETINE HYDROCHLORIDE [Concomitant]
     Active Substance: DULOXETINE HYDROCHLORIDE
  12. PREGABALIN [Concomitant]
     Active Substance: PREGABALIN
  13. TAMSULOSIN HYDROCHLORIDE [Concomitant]
     Active Substance: TAMSULOSIN HYDROCHLORIDE
  14. LEVOTHYROXINE SODIUM [Concomitant]
     Active Substance: LEVOTHYROXINE SODIUM
  15. ROSUVASTATIN CALCIUM [Concomitant]
     Active Substance: ROSUVASTATIN CALCIUM
  16. ZEPBOUND [Concomitant]
     Active Substance: TIRZEPATIDE
  17. KEPPRA [Concomitant]
     Active Substance: LEVETIRACETAM
  18. ADDERALL [Concomitant]
     Active Substance: AMPHETAMINE ASPARTATE\AMPHETAMINE SULFATE\DEXTROAMPHETAMINE SACCHARATE\DEXTROAMPHETAMINE SULFATE

REACTIONS (1)
  - Head injury [Unknown]
